FAERS Safety Report 9197762 (Version 2)
Quarter: 2014Q1

REPORT INFORMATION
  Report Type: Spontaneous
  Country: US (occurrence: US)
  Receive Date: 20130328
  Receipt Date: 20140116
  Transmission Date: 20141002
  Serious: Yes (Other)
  Sender: FDA-Public Use
  Company Number: US-BAYER-2013-037671

PATIENT
  Age: 32 Year
  Sex: Female

DRUGS (4)
  1. YASMIN [Suspect]
     Dosage: UNK
     Dates: start: 200802, end: 200903
  2. OCELLA [Suspect]
     Dosage: UNK
     Dates: start: 200802, end: 200903
  3. METRONIDAZOLE [Concomitant]
     Dosage: 500 MG, UNK
  4. GOLYTELY [Concomitant]

REACTIONS (4)
  - Gallbladder disorder [None]
  - Cholelithiasis [None]
  - Pain [None]
  - Injury [None]
